FAERS Safety Report 8772446 (Version 2)
Quarter: 2012Q4

REPORT INFORMATION
  Report Type: 
  Country: AU (occurrence: AU)
  Receive Date: 20120905
  Receipt Date: 20120914
  Transmission Date: 20130627
  Serious: Yes (Other)
  Sender: FDA-Public Use
  Company Number: AU-B.I. PHARMACEUTICALS,INC./RIDGEFIELD-2012-AU-01570AU

PATIENT
  Age: 82 Year
  Sex: Female
  Weight: 48 kg

DRUGS (13)
  1. PRADAXA [Suspect]
     Indication: ATRIAL FIBRILLATION
     Dosage: 220 mg
     Dates: start: 201108
  2. SLOW K [Concomitant]
     Dosage: 1200 mg
  3. LASIX [Concomitant]
     Dosage: 100 mg
  4. DIGOXIN [Concomitant]
     Dosage: 62.5 mcg
  5. ACTONEL EC COMBI [Concomitant]
     Dosage: 35 mg
  6. DESFERAL [Concomitant]
     Dosage: 71.4286 mg
  7. DILATREND [Concomitant]
     Dosage: 12.5 mg
  8. GOPTEN [Concomitant]
     Dosage: 2 mg
  9. OSTELIN VITAMIN D [Concomitant]
     Dosage: 2000 U
  10. PANADOL OSTEO [Concomitant]
     Dosage: 3990 mg
  11. TEARS NATURALE [Concomitant]
     Dosage: 0.3%-0.1%
  12. TEMAZEPAM [Concomitant]
     Dosage: 10 mg
  13. WATER FOR INJECTIONS [Concomitant]

REACTIONS (5)
  - Cardiac failure [Recovered/Resolved]
  - Pulmonary hypertension [Not Recovered/Not Resolved]
  - Left ventricular dysfunction [Not Recovered/Not Resolved]
  - Thoracic vertebral fracture [Unknown]
  - Oedema [Recovered/Resolved]
